FAERS Safety Report 10137113 (Version 1)
Quarter: 2014Q2

REPORT INFORMATION
  Report Type: Spontaneous
  Country: US (occurrence: None)
  Receive Date: 20140428
  Receipt Date: 20140428
  Transmission Date: 20141212
  Serious: No
  Sender: FDA-Public Use
  Company Number: None

PATIENT
  Age: 45 Year
  Sex: Female
  Weight: 61.24 kg

DRUGS (1)
  1. LEVAQUIN [Suspect]
     Dosage: 1 PILL PER DAY
     Route: 048

REACTIONS (4)
  - Abdominal pain upper [None]
  - Diarrhoea [None]
  - Myalgia [None]
  - Vomiting [None]
